FAERS Safety Report 5072348-1 (Version None)
Quarter: 2006Q3

REPORT INFORMATION
  Report Type: 
  Country: None (occurrence: None)
  Receive Date: 20060807
  Receipt Date: 20060728
  Transmission Date: 20061208
  Serious: Yes (Other)
  Sender: FDA-Public Use
  Company Number: US-AVENTIS-200616395US

PATIENT
  Sex: Female
  Weight: 73 kg

DRUGS (13)
  1. LANTUS [Suspect]
     Dosage: DOSE: CHANGING, ALWAYS IN THE 20'S
  2. LANTUS [Suspect]
  3. APIDRA [Suspect]
     Dosage: DOSE: UNK
  4. APIDRA [Suspect]
     Dosage: DOSE: 3U IF BS OVER 300
  5. OPTICLIK (INSULIN INJECTION PEN) [Suspect]
  6. DEPAKOTE [Concomitant]
     Dosage: DOSE: UNK
  7. OXYBUTYNIN [Concomitant]
     Dosage: DOSE: UNK
  8. MACROBID [Concomitant]
     Dosage: DOSE: UNK
  9. SSRI [Concomitant]
     Dosage: DOSE: UNK
  10. KEPPRA [Concomitant]
     Dosage: DOSE: UNK
  11. CRESTOR [Concomitant]
     Dosage: DOSE: UNK
  12. CALCIUM GLUCONATE [Concomitant]
     Dosage: DOSE: UNK
  13. ANTACID TAB [Concomitant]

REACTIONS (5)
  - BLOOD GLUCOSE INCREASED [None]
  - CONVULSION [None]
  - DEVICE FAILURE [None]
  - HYPOGLYCAEMIA [None]
  - MALAISE [None]
